FAERS Safety Report 4457537-9 (Version None)
Quarter: 2004Q3

REPORT INFORMATION
  Report Type: 
  Country: None (occurrence: None)
  Receive Date: 20040922
  Receipt Date: 20040910
  Transmission Date: 20050211
  Serious: Yes (Hospitalization)
  Sender: FDA-Public Use
  Company Number: 04P-163-0271761-00

PATIENT
  Age: 51 Year
  Sex: Female
  Weight: 80 kg

DRUGS (17)
  1. HUMIRA [Suspect]
     Indication: RHEUMATOID ARTHRITIS
     Dosage: 40 MG, 1 IN 2 WK, SUBCUTANEOUS
     Route: 058
     Dates: start: 20040516, end: 20040826
  2. NAPROXEN [Concomitant]
  3. METHYLPREDNISOLONE [Concomitant]
  4. CITALOPRAM HYDROBROMIDE [Concomitant]
  5. AMITRIPTYLINE HYDROCHLORIDE [Concomitant]
  6. ALENDRONATE SODIUM [Concomitant]
  7. GLUCOSAMINE W/CHONDROITIN SULFATES [Concomitant]
  8. METHOTREXATE [Concomitant]
  9. FOLIC ACID [Concomitant]
  10. VICODIN [Concomitant]
  11. FLUCONAZOLE [Concomitant]
  12. MULTI-VITAMINS [Concomitant]
  13. TRIAMCINOLONE ACETONIDE [Concomitant]
  14. LIDOCAINE [Concomitant]
  15. METHYLPREDNISOLONE [Concomitant]
  16. GENTAMICIN SULFATE [Concomitant]
  17. INFLUENZA VACCINE [Concomitant]

REACTIONS (9)
  - ABASIA [None]
  - ASTHENIA [None]
  - BLOOD PRESSURE DIASTOLIC INCREASED [None]
  - BODY TEMPERATURE DECREASED [None]
  - CEREBROVASCULAR ACCIDENT [None]
  - DIPLOPIA [None]
  - LACUNAR INFARCTION [None]
  - NAUSEA [None]
  - VERTEBROBASILAR INSUFFICIENCY [None]
